FAERS Safety Report 5048418-0 (Version None)
Quarter: 2006Q3

REPORT INFORMATION
  Report Type: 
  Country: None (occurrence: None)
  Receive Date: 20060705
  Receipt Date: 20060614
  Transmission Date: 20061208
  Serious: Yes (Hospitalization, Other)
  Sender: FDA-Public Use
  Company Number: US200603007068

PATIENT
  Age: 46 Year
  Sex: Male

DRUGS (2)
  1. HUMALOG [Suspect]
     Indication: DIABETES MELLITUS
     Dosage: SUB. PUMP
  2. ILETIN [Suspect]
     Dates: start: 19740101

REACTIONS (7)
  - BLOOD GLUCOSE FLUCTUATION [None]
  - CELLULITIS [None]
  - GAIT DISTURBANCE [None]
  - HYPERTENSION [None]
  - INFECTED SKIN ULCER [None]
  - LEG AMPUTATION [None]
  - OEDEMA PERIPHERAL [None]
